FAERS Safety Report 21714851 (Version 1)
Quarter: 2022Q4

REPORT INFORMATION
  Report Type: Spontaneous
  Country: US (occurrence: None)
  Receive Date: 20221209
  Receipt Date: 20221209
  Transmission Date: 20230113
  Serious: Yes (Hospitalization)
  Sender: FDA-Public Use
  Company Number: None

PATIENT
  Sex: Female
  Weight: 104.1 kg

DRUGS (13)
  1. EPCLUSA [Suspect]
     Active Substance: SOFOSBUVIR\VELPATASVIR
     Indication: Hepatitis C
     Dosage: OTHER QUANTITY : 400-100MG TABS;?FREQUENCY : DAILY;?
     Route: 048
     Dates: start: 20201002, end: 20201225
  2. MYCOPHENOLIC ACID [Concomitant]
     Active Substance: MYCOPHENOLIC ACID
  3. BACTRIM [Concomitant]
     Active Substance: SULFAMETHOXAZOLE\TRIMETHOPRIM
  4. ENVARSUS XR [Concomitant]
     Active Substance: TACROLIMUS
  5. LIPITOR [Concomitant]
     Active Substance: ATORVASTATIN CALCIUM
  6. CHOLECALCIFEROL [Concomitant]
     Active Substance: CHOLECALCIFEROL
  7. ETONOGESTREL [Concomitant]
     Active Substance: ETONOGESTREL
  8. LEVOTHYROXINE [Concomitant]
     Active Substance: LEVOTHYROXINE
  9. PAROXETINE [Concomitant]
     Active Substance: PAROXETINE
  10. PREDNISONE [Concomitant]
     Active Substance: PREDNISONE
  11. SODIUM BICARBONATE [Concomitant]
     Active Substance: SODIUM BICARBONATE
  12. EPCLUSA [Concomitant]
     Active Substance: SOFOSBUVIR\VELPATASVIR
  13. MAGNESIUM OXIDE [Concomitant]
     Active Substance: MAGNESIUM OXIDE

REACTIONS (6)
  - Acute kidney injury [None]
  - Blood creatinine increased [None]
  - Urine output decreased [None]
  - Fluid intake reduced [None]
  - Ureteric obstruction [None]
  - Ureteric stenosis [None]

NARRATIVE: CASE EVENT DATE: 20201105
